FAERS Safety Report 8420646 (Version 6)
Quarter: 2016Q2

REPORT INFORMATION
  Report Type: Spontaneous
  Country: US (occurrence: US)
  Receive Date: 20120222
  Receipt Date: 20160426
  Transmission Date: 20160815
  Serious: Yes (Hospitalization, Other)
  Sender: FDA-Public Use
  Company Number: US-GLAXOSMITHKLINE-A0928062A

PATIENT
  Sex: Female
  Weight: 108 kg

DRUGS (2)
  1. AVANDAMET [Suspect]
     Active Substance: METFORMIN HYDROCHLORIDE\ROSIGLITAZONE MALEATE
     Indication: DIABETES MELLITUS
     Dosage: UNK, BID
     Route: 048
     Dates: start: 20070327, end: 20101015
  2. ROSIGLITAZONE MALEATE. [Suspect]
     Active Substance: ROSIGLITAZONE MALEATE
     Indication: DIABETES MELLITUS
     Dosage: 4 MG, 1D
     Route: 048
     Dates: start: 20100805, end: 20100913

REACTIONS (10)
  - Gait disturbance [Unknown]
  - Pleural effusion [Unknown]
  - Coronary artery disease [Unknown]
  - Brain injury [Unknown]
  - Cerebral ischaemia [Not Recovered/Not Resolved]
  - Myocardial ischaemia [Unknown]
  - Arterial stenosis [Unknown]
  - Angioplasty [Unknown]
  - Myocardial infarction [Unknown]
  - Coronary artery occlusion [Unknown]
